FAERS Safety Report 11147778 (Version 1)
Quarter: 2015Q2

REPORT INFORMATION
  Report Type: Spontaneous
  Country: US (occurrence: US)
  Receive Date: 20150529
  Receipt Date: 20150529
  Transmission Date: 20150821
  Serious: Yes (Other)
  Sender: FDA-Public Use
  Company Number: US-ACCORD-031027

PATIENT
  Age: 42 Year
  Sex: Female

DRUGS (7)
  1. TOPIRAMATE. [Suspect]
     Active Substance: TOPIRAMATE
     Indication: JUVENILE MYOCLONIC EPILEPSY
  2. LAMOTRIGINE. [Suspect]
     Active Substance: LAMOTRIGINE
     Indication: JUVENILE MYOCLONIC EPILEPSY
  3. PHENYTOIN. [Suspect]
     Active Substance: PHENYTOIN
     Indication: JUVENILE MYOCLONIC EPILEPSY
  4. VALPROATE [Suspect]
     Active Substance: VALPROATE SODIUM
     Indication: JUVENILE MYOCLONIC EPILEPSY
  5. LEVETIRACETAM. [Suspect]
     Active Substance: LEVETIRACETAM
     Indication: JUVENILE MYOCLONIC EPILEPSY
  6. LACOSAMIDE [Suspect]
     Active Substance: LACOSAMIDE
     Indication: JUVENILE MYOCLONIC EPILEPSY
  7. CARBAMAZEPINE. [Suspect]
     Active Substance: CARBAMAZEPINE
     Indication: JUVENILE MYOCLONIC EPILEPSY

REACTIONS (2)
  - Epilepsy [Recovered/Resolved]
  - Drug ineffective [Unknown]
